FAERS Safety Report 15495755 (Version 4)
Quarter: 2018Q4

REPORT INFORMATION
  Report Type: Report from Study
  Country: US (occurrence: US)
  Receive Date: 20181013
  Receipt Date: 20181226
  Transmission Date: 20190205
  Serious: Yes (Other)
  Sender: FDA-Public Use
  Company Number: PHEH2018US042593

PATIENT
  Age: 68 Year
  Sex: Male
  Weight: 97 kg

DRUGS (1)
  1. ENTRESTO [Suspect]
     Active Substance: SACUBITRIL\VALSARTAN
     Indication: CARDIAC FAILURE CHRONIC
     Dosage: 1 DF, BID (24 MG SACUBITRIL AND 26 MG VALSARTAN)
     Route: 048
     Dates: start: 20180615, end: 20180620

REACTIONS (6)
  - Urticaria [Recovered/Resolved]
  - Erythema [Unknown]
  - Hyperhidrosis [Recovered/Resolved]
  - Chest discomfort [Unknown]
  - Hypertension [Recovered/Resolved]
  - Pruritus [Unknown]

NARRATIVE: CASE EVENT DATE: 20180615
